FAERS Safety Report 6575071-7 (Version None)
Quarter: 2010Q1

REPORT INFORMATION
  Report Type: 
  Country: None (occurrence: None)
  Receive Date: 20100209
  Receipt Date: 20100129
  Transmission Date: 20100710
  Serious: Yes (Hospitalization, Other)
  Sender: FDA-Public Use
  Company Number: US-AMGEN-QUU389334

PATIENT
  Sex: Female

DRUGS (2)
  1. ENBREL [Suspect]
     Indication: RHEUMATOID ARTHRITIS
     Route: 058
     Dates: start: 20050204
  2. METHOTREXATE [Concomitant]
     Route: 048
     Dates: start: 20091201

REACTIONS (3)
  - RHEUMATOID ARTHRITIS [None]
  - WEGENER'S GRANULOMATOSIS [None]
  - WOUND COMPLICATION [None]
